FAERS Safety Report 13476874 (Version 1)
Quarter: 2017Q2

REPORT INFORMATION
  Report Type: Spontaneous
  Country: US (occurrence: US)
  Receive Date: 20170424
  Receipt Date: 20170424
  Transmission Date: 20170830
  Serious: Yes (Hospitalization)
  Sender: FDA-Public Use
  Company Number: None

PATIENT
  Age: 63 Year
  Sex: Female

DRUGS (20)
  1. METHOTREXATE. [Concomitant]
     Active Substance: METHOTREXATE
  2. PREMARIN [Concomitant]
     Active Substance: ESTROGENS, CONJUGATED
  3. VITAMIN B12 [Concomitant]
     Active Substance: CYANOCOBALAMIN
  4. HYDROCODONE [Concomitant]
     Active Substance: HYDROCODONE
  5. IRON [Concomitant]
     Active Substance: IRON
  6. OSCAL [Concomitant]
     Active Substance: CALCIUM CARBONATE
  7. FOLIC ACID. [Concomitant]
     Active Substance: FOLIC ACID
  8. PREDNISONE. [Concomitant]
     Active Substance: PREDNISONE
  9. TRAMADOL. [Concomitant]
     Active Substance: TRAMADOL
  10. FERROUS SULFATE. [Concomitant]
     Active Substance: FERROUS SULFATE
  11. ASPIRIN. [Concomitant]
     Active Substance: ASPIRIN
  12. CARDIZEM [Concomitant]
     Active Substance: DILTIAZEM HYDROCHLORIDE
  13. DEXILANT [Concomitant]
     Active Substance: DEXLANSOPRAZOLE
  14. FOSAMAX [Concomitant]
     Active Substance: ALENDRONATE SODIUM
  15. LEUCOVORIN. [Suspect]
     Active Substance: LEUCOVORIN
  16. LISINOPRIL. [Concomitant]
     Active Substance: LISINOPRIL
  17. ENBREL [Suspect]
     Active Substance: ETANERCEPT
     Indication: RHEUMATOID ARTHRITIS
     Dosage: DOSE - 50MG/ML
     Route: 058
     Dates: start: 20040202
  18. CALCIUM [Concomitant]
     Active Substance: CALCIUM
  19. PERCOCET [Concomitant]
     Active Substance: ACETAMINOPHEN\OXYCODONE HYDROCHLORIDE
  20. NORCO [Concomitant]
     Active Substance: ACETAMINOPHEN\HYDROCODONE BITARTRATE

REACTIONS (2)
  - Condition aggravated [None]
  - Surgery [None]
